FAERS Safety Report 10502495 (Version 1)
Quarter: 2014Q4

REPORT INFORMATION
  Report Type: Spontaneous
  Country: LV (occurrence: LV)
  Receive Date: 20141007
  Receipt Date: 20141007
  Transmission Date: 20150528
  Serious: Yes (Hospitalization)
  Sender: FDA-Public Use
  Company Number: LV-MERCK-1410LVA001580

PATIENT
  Age: 63 Year
  Sex: Male
  Weight: 132 kg

DRUGS (4)
  1. PROTAPHANE [Concomitant]
     Active Substance: INSULIN HUMAN
     Indication: DIABETES MELLITUS
     Dosage: 100 SV/ML - 3 ML, 60 UNITS, BEFORE NIGHT
     Route: 058
     Dates: start: 20140604, end: 20140930
  2. NOVORAPID [Concomitant]
     Active Substance: INSULIN ASPART
     Indication: DIABETES MELLITUS
     Dosage: 100 SV/ML - 3 ML, 20-30 UNITS, BEFORE MEALS
     Route: 058
     Dates: start: 20140604, end: 20140930
  3. GLUCOPHAGE XR [Concomitant]
     Active Substance: METFORMIN HYDROCHLORIDE
     Indication: DIABETES MELLITUS
     Dosage: 2000 MG, TWICE A DAY
     Route: 048
     Dates: start: 20140604, end: 20140930
  4. JANUVIA [Suspect]
     Active Substance: SITAGLIPTIN PHOSPHATE
     Indication: DIABETES MELLITUS
     Dosage: 100 MG, QD
     Route: 048
     Dates: start: 20140604, end: 20140930

REACTIONS (1)
  - Lipase increased [Unknown]

NARRATIVE: CASE EVENT DATE: 20140929
